FAERS Safety Report 14398632 (Version 1)
Quarter: 2018Q1

REPORT INFORMATION
  Report Type: Spontaneous
  Country: CA (occurrence: CA)
  Receive Date: 20180117
  Receipt Date: 20180117
  Transmission Date: 20180509
  Serious: Yes (Death)
  Sender: FDA-Public Use
  Company Number: CA-INGENUS PHARMACEUTICALS NJ, LLC-ING201801-000016

PATIENT
  Age: 18 Year
  Sex: Female
  Weight: 63 kg

DRUGS (12)
  1. QUETIAPINE. [Suspect]
     Active Substance: QUETIAPINE
     Dosage: 20 PILLS OF 25 MG
  2. CITALOPRAM [Concomitant]
     Active Substance: CITALOPRAM HYDROBROMIDE
  3. ISONIAZID. [Concomitant]
     Active Substance: ISONIAZID
  4. N ACETYLCYSTEINE [Concomitant]
     Active Substance: ACETYLCYSTEINE
  5. ACETAMINOPHEN. [Suspect]
     Active Substance: ACETAMINOPHEN
     Dosage: ~40 PILLS
  6. NOREPINEPHRINE. [Concomitant]
     Active Substance: NOREPINEPHRINE
  7. CARISOPRODOL AND ASPIRIN [Suspect]
     Active Substance: ASPIRIN\CARISOPRODOL
     Dosage: APPROX 15 PILLS
  8. ACTIVATED CHARCOAL [Concomitant]
     Active Substance: ACTIVATED CHARCOAL
     Route: 048
  9. ATOMOXETINE. [Concomitant]
     Active Substance: ATOMOXETINE HYDROCHLORIDE
  10. PYRIDOXINE [Concomitant]
     Active Substance: PYRIDOXINE
  11. FOMEPIZOLE. [Concomitant]
     Active Substance: FOMEPIZOLE
  12. THIAMINE. [Concomitant]
     Active Substance: THIAMINE

REACTIONS (1)
  - Suicide attempt [Fatal]
